FAERS Safety Report 15369888 (Version 1)
Quarter: 2018Q3

REPORT INFORMATION
  Report Type: Spontaneous
  Country: US (occurrence: US)
  Receive Date: 20180904
  Receipt Date: 20180904
  Transmission Date: 20181010
  Serious: No
  Sender: FDA-Public Use
  Company Number: None

PATIENT
  Age: 45 Year
  Sex: Male
  Weight: 75.2 kg

DRUGS (1)
  1. CISPLATIN. [Suspect]
     Active Substance: CISPLATIN
     Dates: end: 20141230

REACTIONS (4)
  - Deafness unilateral [None]
  - Nasopharyngitis [None]
  - Middle ear effusion [None]
  - Mastoid effusion [None]

NARRATIVE: CASE EVENT DATE: 20180823
